FAERS Safety Report 12641970 (Version 1)
Quarter: 2016Q3

REPORT INFORMATION
  Report Type: Spontaneous
  Country: US (occurrence: GB)
  Receive Date: 20160810
  Receipt Date: 20160810
  Transmission Date: 20161109
  Serious: No
  Sender: FDA-Public Use
  Company Number: US-EISAI MEDICAL RESEARCH-EC-2016-019118

PATIENT
  Age: 15 Year
  Sex: Female

DRUGS (6)
  1. PERAMPANEL [Suspect]
     Active Substance: PERAMPANEL
     Route: 048
  2. VALPROIC ACID. [Concomitant]
     Active Substance: VALPROIC ACID
     Indication: LAFORA^S MYOCLONIC EPILEPSY
     Dosage: UNKNOWN
  3. LEVETIRACETAM. [Concomitant]
     Active Substance: LEVETIRACETAM
     Indication: LAFORA^S MYOCLONIC EPILEPSY
     Dosage: UNKNOWN
  4. LORAZEPAM. [Concomitant]
     Active Substance: LORAZEPAM
     Indication: LAFORA^S MYOCLONIC EPILEPSY
     Dosage: UNKNOWN
  5. PERAMPANEL [Suspect]
     Active Substance: PERAMPANEL
     Indication: LAFORA^S MYOCLONIC EPILEPSY
     Route: 048
  6. PIRACETAM [Concomitant]
     Active Substance: PIRACETAM
     Indication: LAFORA^S MYOCLONIC EPILEPSY
     Dosage: UNKNOWN

REACTIONS (3)
  - Mobility decreased [Unknown]
  - Cognitive disorder [Unknown]
  - Coordination abnormal [Unknown]
